FAERS Safety Report 24146849 (Version 1)
Quarter: 2024Q3

REPORT INFORMATION
  Report Type: Spontaneous
  Country: US (occurrence: US)
  Receive Date: 20240729
  Receipt Date: 20240729
  Transmission Date: 20241016
  Serious: No
  Sender: BAUSCH AND LOMB
  Company Number: US-BAUSCHBL-2024BNL030375

PATIENT
  Age: 37 Year
  Sex: Male

DRUGS (1)
  1. MIEBO [Suspect]
     Active Substance: PERFLUOROHEXYLOCTANE
     Indication: Product used for unknown indication
     Route: 047
     Dates: end: 202407

REACTIONS (4)
  - Hypersensitivity [Unknown]
  - Pain [Unknown]
  - Diplopia [Unknown]
  - Swelling [Unknown]

NARRATIVE: CASE EVENT DATE: 20240701
